FAERS Safety Report 5219989-6 (Version None)
Quarter: 2007Q1

REPORT INFORMATION
  Report Type: 
  Country: None (occurrence: None)
  Receive Date: 20070124
  Receipt Date: 20070124
  Transmission Date: 20070707
  Serious: Yes (Other)
  Sender: FDA-Public Use
  Company Number: None

PATIENT
  Age: 83 Year
  Sex: Male
  Weight: 79.4 kg

DRUGS (11)
  1. ASPIRIN [Suspect]
  2. METFORMIN HCL [Concomitant]
  3. OMEPRAZOLE [Concomitant]
  4. INSULIN NPH HUMAN / NOVOLIN N [Concomitant]
  5. SIMVASTATIN [Concomitant]
  6. TAMSULOSIN HCL [Concomitant]
  7. DOCUSATE NA [Concomitant]
  8. FERROUS SO4 [Concomitant]
  9. LISINOPRIL [Concomitant]
  10. CYANOCOBALAMIN [Concomitant]
  11. BRIMONIDINE TARTRATE [Concomitant]

REACTIONS (1)
  - ANAEMIA [None]
